FAERS Safety Report 24201092 (Version 1)
Quarter: 2024Q3

REPORT INFORMATION
  Report Type: Spontaneous
  Country: US (occurrence: None)
  Receive Date: 20240809
  Receipt Date: 20240809
  Transmission Date: 20241017
  Serious: Yes (Other)
  Sender: Public
  Company Number: None

PATIENT
  Sex: Female
  Weight: 77.11 kg

DRUGS (1)
  1. ZYPREXA [Suspect]
     Active Substance: OLANZAPINE
     Indication: Psychotic disorder
     Dosage: FREQUENCY : TWICE A DAY;?
     Route: 048
     Dates: start: 20240418, end: 20240420

REACTIONS (13)
  - Dizziness [None]
  - Drooling [None]
  - Vision blurred [None]
  - Dysuria [None]
  - Headache [None]
  - Dry mouth [None]
  - Abdominal discomfort [None]
  - Back pain [None]
  - Arthralgia [None]
  - Suicidal ideation [None]
  - Thirst [None]
  - Feeling hot [None]
  - Urticaria [None]
